FAERS Safety Report 6342205-9 (Version None)
Quarter: 2009Q3

REPORT INFORMATION
  Report Type: 
  Country: None (occurrence: None)
  Receive Date: 20090903
  Receipt Date: 20090903
  Transmission Date: 20100115
  Serious: Yes (Other)
  Sender: FDA-Public Use
  Company Number: None

PATIENT
  Age: 75 Year
  Sex: Male
  Weight: 95.2554 kg

DRUGS (1)
  1. DOXAZOSIN MESYLATE [Suspect]
     Indication: NOCTURIA
     Dates: start: 20090621, end: 20090901

REACTIONS (3)
  - HEADACHE [None]
  - HEART RATE INCREASED [None]
  - PALPITATIONS [None]
